FAERS Safety Report 5007331-5 (Version None)
Quarter: 2006Q2

REPORT INFORMATION
  Report Type: 
  Country: None (occurrence: None)
  Receive Date: 20060518
  Receipt Date: 20060518
  Transmission Date: 20061013
  Serious: Yes (Life-Threatening, Hospitalization)
  Sender: FDA-Public Use
  Company Number: None

PATIENT
  Sex: Female
  Weight: 76.7033 kg

DRUGS (22)
  1. BEVACIZUMAB 5MG/KG GENENTECH [Suspect]
     Indication: ENDOCRINE PANCREATIC DISORDER
     Dosage: 37.5 MG QS, Q 2 WEEKS, IV
     Route: 042
     Dates: start: 20060102, end: 20060428
  2. BEVACIZUMAB 5MG/KG GENENTECH [Suspect]
     Indication: NEOPLASM MALIGNANT
     Dosage: 37.5 MG QS, Q 2 WEEKS, IV
     Route: 042
     Dates: start: 20060102, end: 20060428
  3. DEXAMETHASONE TAB [Suspect]
     Indication: ENDOCRINE PANCREATIC DISORDER
     Dosage: 10 MG Q 2 WEEKS IV
     Route: 042
     Dates: start: 20060102, end: 20060428
  4. DEXAMETHASONE TAB [Suspect]
     Indication: NEOPLASM MALIGNANT
     Dosage: 10 MG Q 2 WEEKS IV
     Route: 042
     Dates: start: 20060102, end: 20060428
  5. ALOXI [Suspect]
     Indication: ENDOCRINE PANCREATIC DISORDER
     Dosage: 0.25MG, Q 2 WKS, IV
     Route: 042
     Dates: start: 20060102, end: 20060428
  6. ALOXI [Suspect]
     Indication: NEOPLASM MALIGNANT
     Dosage: 0.25MG, Q 2 WKS, IV
     Route: 042
     Dates: start: 20060102, end: 20060428
  7. OXALIPLATIN 65MG/M2 SANOFI-SYNTHELAB [Suspect]
     Indication: ENDOCRINE PANCREATIC DISORDER
     Dosage: 125 MG Q 2 WKS IV
     Route: 042
     Dates: start: 20060102, end: 20060428
  8. OXALIPLATIN 65MG/M2 SANOFI-SYNTHELAB [Suspect]
     Indication: NEOPLASM MALIGNANT
     Dosage: 125 MG Q 2 WKS IV
     Route: 042
     Dates: start: 20060102, end: 20060428
  9. LEUCOVORIN CALCIUM [Suspect]
     Dosage: 390 MG Q 2 WKS IV
     Route: 042
     Dates: start: 20060102, end: 20060418
  10. FLUOROURACIL [Suspect]
     Dosage: 620 + 1870MG Q 2 WKS IV
     Route: 042
     Dates: start: 20060102, end: 20060428
  11. CELEXA [Concomitant]
  12. OXYCODONE/VICODIN [Concomitant]
  13. PANCREASE [Concomitant]
  14. . [Concomitant]
  15. COMPAZINE [Concomitant]
  16. ATIVAN [Concomitant]
  17. KYTRIL [Concomitant]
  18. HYDROCHLOROTHIAZIDE [Concomitant]
  19. NORVASC [Concomitant]
  20. COLACE [Concomitant]
  21. PROTONIX [Concomitant]
  22. CARAFATE [Concomitant]

REACTIONS (11)
  - ABDOMINAL PAIN [None]
  - AORTIC DISORDER [None]
  - BLOOD PRESSURE DIASTOLIC DECREASED [None]
  - CHEST PAIN [None]
  - CONDITION AGGRAVATED [None]
  - DEHYDRATION [None]
  - HAEMATOMA [None]
  - HYPERTENSION [None]
  - JEJUNAL ULCER [None]
  - ULCER [None]
  - VOMITING [None]
